FAERS Safety Report 6711346-6 (Version None)
Quarter: 2010Q2

REPORT INFORMATION
  Report Type: 
  Country: None (occurrence: None)
  Receive Date: 20100505
  Receipt Date: 20100426
  Transmission Date: 20101027
  Serious: Yes (Other)
  Sender: FDA-Public Use
  Company Number: FR-PFIZER INC-2010053362

PATIENT
  Age: 42 Year
  Sex: Female

DRUGS (2)
  1. CHAMPIX [Suspect]
     Indication: SMOKING CESSATION THERAPY
     Dosage: UNK
     Dates: start: 20090901, end: 20091001
  2. EFFEXOR [Concomitant]

REACTIONS (2)
  - BRIEF PSYCHOTIC DISORDER WITH MARKED STRESSORS [None]
  - MIGRAINE [None]
